FAERS Safety Report 22908615 (Version 4)
Quarter: 2023Q4

REPORT INFORMATION
  Report Type: Report from Study
  Country: DE (occurrence: DE)
  Receive Date: 20230905
  Receipt Date: 20231129
  Transmission Date: 20240110
  Serious: Yes (Hospitalization, Other)
  Sender: FDA-Public Use
  Company Number: DE-KRKA-DE2023K07524STU

PATIENT
  Age: 76 Year
  Sex: Male
  Weight: 73 kg

DRUGS (30)
  1. LENALIDOMIDE [Suspect]
     Active Substance: LENALIDOMIDE
     Indication: Plasma cell myeloma
     Dosage: 20 MILLIGRAM, QD, ON CYCLE DAYS 1-21
     Route: 048
     Dates: start: 20230330, end: 20230522
  2. LENALIDOMIDE [Suspect]
     Active Substance: LENALIDOMIDE
     Dosage: 15 MG PER DAY ON CYCLE DAYS 1-21 OF A 21 DAYS LONG CYCLE
     Route: 048
     Dates: start: 202305, end: 20230509
  3. LENALIDOMIDE [Suspect]
     Active Substance: LENALIDOMIDE
     Dosage: 15 MILLIGRAM, QD, ON CYCLE DAYS 1-21
     Route: 048
     Dates: start: 20230523
  4. LENALIDOMIDE [Suspect]
     Active Substance: LENALIDOMIDE
     Dosage: 15 MG PER DAY ON CYCLE DAYS 1-21 OF A 21 DAYS LONG CYCLE
     Route: 048
     Dates: start: 20230717
  5. DEXAMETHASONE [Suspect]
     Active Substance: DEXAMETHASONE
     Indication: Plasma cell myeloma
     Dosage: 20 MG, QD ON CYCLE DAYS 1, 2, 8, 9, 15, 16, 22
     Route: 048
     Dates: start: 20230330, end: 20230726
  6. DEXAMETHASONE [Suspect]
     Active Substance: DEXAMETHASONE
     Dosage: 20 MILLIGRAM, QD, 20 MG PER DAY ON CYCLE DAYS 1, 2, 8, 15, 16, 22 OF A 21 DAYS LONG CYCLE
     Route: 048
     Dates: start: 20231018
  7. DEXAMETHASONE [Suspect]
     Active Substance: DEXAMETHASONE
     Dosage: 20 MILLIGRAM, QD, 1, 2, 8, 15, 22 OF A 21 DAYS LONG CYCLE
     Route: 048
     Dates: start: 20231025
  8. TORSEMIDE [Suspect]
     Active Substance: TORSEMIDE
     Indication: Product used for unknown indication
     Dosage: UNK
     Route: 065
  9. DARATUMUMAB [Suspect]
     Active Substance: DARATUMUMAB
     Indication: Plasma cell myeloma
     Dosage: 1800 MILLIGRAM, QD (DAY 1, 8, 15, 22)
     Route: 058
     Dates: start: 20230330
  10. DARATUMUMAB [Suspect]
     Active Substance: DARATUMUMAB
     Dosage: 1822 MILLIGRAM, QD
     Route: 058
     Dates: start: 20230523
  11. DARATUMUMAB [Suspect]
     Active Substance: DARATUMUMAB
     Dosage: 1800 MILLIGRAM, QD, PER DAY ON DAY 1 OF A 21 DAY LONG CYCLE
     Route: 065
     Dates: start: 20231025
  12. CANDESARTAN [Concomitant]
     Active Substance: CANDESARTAN
     Dosage: 16 MILLIGRAM, QD
     Route: 048
     Dates: start: 20230622
  13. LERCANIDIPINE [Concomitant]
     Active Substance: LERCANIDIPINE
     Dosage: UNK
     Route: 065
  14. MONTELUKAST [Concomitant]
     Active Substance: MONTELUKAST SODIUM
     Dosage: UNK
     Route: 065
  15. ACETAMINOPHEN [Concomitant]
     Active Substance: ACETAMINOPHEN
     Dosage: UNK
     Route: 065
  16. DIGOXIN [Concomitant]
     Active Substance: DIGOXIN
     Dosage: 0.25 MILLIGRAM, QD
     Route: 048
     Dates: start: 20230622
  17. PANTOPRAZOLE [Concomitant]
     Active Substance: PANTOPRAZOLE
     Dosage: 40 MILLIGRAM, QD
     Route: 048
     Dates: start: 20230622
  18. DIMETHINDENE [Concomitant]
     Active Substance: DIMETHINDENE
     Dosage: UNK
     Route: 065
  19. COTRIM [Concomitant]
     Active Substance: SULFAMETHOXAZOLE\TRIMETHOPRIM
     Dosage: UNK
     Route: 065
  20. ACYCLOVIR [Concomitant]
     Active Substance: ACYCLOVIR
     Dosage: UNK
     Route: 065
  21. ELIQUIS [Concomitant]
     Active Substance: APIXABAN
     Dosage: UNK
     Route: 065
  22. CALCIUM CARBONATE\CHOLECALCIFEROL [Concomitant]
     Active Substance: CALCIUM CARBONATE\CHOLECALCIFEROL
     Dosage: UNK
     Route: 065
  23. METOPROLOL [Concomitant]
     Active Substance: METOPROLOL
     Dosage: UNK
     Route: 065
  24. ALDACTONE [Concomitant]
     Active Substance: SPIRONOLACTONE
     Dosage: 25 MILLIGRAM, QD, 1-0-0
     Route: 048
     Dates: start: 20230623
  25. ENOXAPARIN SODIUM [Concomitant]
     Active Substance: ENOXAPARIN SODIUM
     Dosage: 1 DOSAGE FORM, BID,1-0-1 (40MG O.4 ML)
     Route: 058
     Dates: start: 20230623
  26. METOPROLOL [Concomitant]
     Active Substance: METOPROLOL
     Dosage: 50 MILLIGRAM, BID 1.5-0-1.5
     Route: 048
     Dates: start: 20230622
  27. Fresubin energy [Concomitant]
     Dosage: 1 DOSAGE FORM, BID,1-1-0
     Route: 048
     Dates: start: 20230622
  28. ACYCLOVIR [Concomitant]
     Active Substance: ACYCLOVIR
     Dosage: 400 MILLIGRAM, BID,1-0-1
     Route: 048
     Dates: start: 20230622
  29. TORASEMIDE HEXAL [Concomitant]
     Dosage: 10 MILLIGRAM, BID
     Route: 048
     Dates: start: 20230627
  30. Calcium sandoz d osteo [Concomitant]
     Dosage: 1 DOSAGE FORM, BID, 1-0-1
     Route: 048
     Dates: start: 20230622

REACTIONS (13)
  - Calculus bladder [Recovered/Resolved]
  - Renal oncocytoma [Recovered/Resolved]
  - Neutropenia [Recovering/Resolving]
  - Cardiac failure acute [Recovered/Resolved]
  - Malaise [Recovered/Resolved]
  - Fatigue [Recovered/Resolved]
  - White blood cell count decreased [Recovering/Resolving]
  - Leukopenia [Unknown]
  - Febrile neutropenia [Unknown]
  - Haemoglobin decreased [Recovered/Resolved]
  - Dyspnoea [Recovered/Resolved]
  - Vertigo [Recovering/Resolving]
  - Rash [Recovering/Resolving]

NARRATIVE: CASE EVENT DATE: 20230501
